FAERS Safety Report 6354496-9 (Version None)
Quarter: 2009Q3

REPORT INFORMATION
  Report Type: 
  Country: None (occurrence: None)
  Receive Date: 20090910
  Receipt Date: 20090827
  Transmission Date: 20100115
  Serious: Yes (Hospitalization)
  Sender: FDA-Public Use
  Company Number: ALD1-SE-2009-0018

PATIENT
  Age: 59 Year
  Sex: Male

DRUGS (20)
  1. ALDOMET [Suspect]
     Indication: HYPERTENSION
     Dosage: 250 MG PER ORAL
     Route: 048
     Dates: start: 20061110, end: 20090719
  2. ARANESP  (DARBEPOETIN ALFA) (30 MICROGRAM, SOLUTION) [Concomitant]
  3. PROGRAF (TACROLIMUS) (1MILLIGRAM, CAPSULES) [Concomitant]
  4. ENALAPRIL ACTAVIS (ENALAPRIL) (20 MILLIGRAM, TABLETS) [Concomitant]
  5. OMEPRAZOL ABCUR (OMEPRAZOLE) (20 MILLIGRAM, TABLETS) [Concomitant]
  6. MOMPARA (60 MILLIGRAM, TABLETS) [Concomitant]
  7. ORALOVITE (ASCORBIC ACID, PYRIDOXINE HYDROCHLORIDE, THIAMINE HYDROCHLO [Concomitant]
  8. IMUREL (AZATHIOPRINE) (50 MILLIGRAM, TABLETS) (AZATHIOPRINE) [Concomitant]
  9. DUROFERON (FERROUS SULFATE) (100 MILLIGRAM, TAB) [Concomitant]
  10. KALEROID (POTASSIUM CHLORIDE) (750 MILLIGRAM, TABLETS) [Concomitant]
  11. PREDNISOLONE  (PREDNISOLONE) (5 MILLIGRAM, TABLETS) [Concomitant]
  12. NATRIUMB (KARBONAT RECIP (1 GRAM, TABLETS) [Concomitant]
  13. LASIX RETARD (FUROSEMIDE) (60 MILLIGRAM, CAPSULES) [Concomitant]
  14. ETALPHA (ALFACALCIDOL) (0.25 MICROGRAM, CAPSULES) [Concomitant]
  15. SELOKENZOC (METOPROLOL SUCCINATE) (100 MILLIGRAM, TABLETS) [Concomitant]
  16. PLENDIL (FELODIPINE) (10 MILLIGRAM, TABLETS) [Concomitant]
  17. TROMBYL (ACETYLSALICYLIC ACID) (75 MILLIGRAM, TABLETS) [Concomitant]
  18. LAKTULOS  (LACTULOSE) (670 MILLIGRAM/MILLILITERS, SOLUTION) [Concomitant]
  19. ATACAND (CANDESARTAN CILEXETIL) (16 MILLIGRAM, TABLETS) [Concomitant]
  20. ALFADIL (DOXAZOSIN MESILATE) (8 MILLIGRAM, TABLETS) [Concomitant]

REACTIONS (7)
  - DYSPNOEA [None]
  - GENERAL PHYSICAL HEALTH DETERIORATION [None]
  - HAEMODIALYSIS [None]
  - HEPATIC FAILURE [None]
  - RENAL CYST [None]
  - RENAL FAILURE ACUTE [None]
  - RIGHT VENTRICULAR FAILURE [None]
